FAERS Safety Report 5630262-4 (Version None)
Quarter: 2008Q1

REPORT INFORMATION
  Report Type: 
  Country: None (occurrence: None)
  Receive Date: 20080213
  Receipt Date: 20080204
  Transmission Date: 20080703
  Serious: Yes (Death)
  Sender: FDA-Public Use
  Company Number: 2008-01071

PATIENT
  Age: 40 Year
  Sex: Female

DRUGS (4)
  1. DIPHENHYDRAMINE (DIPHENHYDRAMINE HYDOCHLORIDE) CAPSULE [Suspect]
  2. NORTRIPTYLINE HYDROCHLORIDE                 (NORTRIPTYLINE HYDROCHLORI [Suspect]
  3. FLUOXETINE                       (FLUOXETINE) CAPSULE [Suspect]
  4. CYPROHEPTADINE HCL [Suspect]

REACTIONS (1)
  - DEATH [None]
